FAERS Safety Report 4865716-1 (Version None)
Quarter: 2005Q4

REPORT INFORMATION
  Report Type: 
  Country: None (occurrence: None)
  Receive Date: 20051223
  Receipt Date: 20051215
  Transmission Date: 20060501
  Serious: Yes (Disabling)
  Sender: FDA-Public Use
  Company Number: FR-ABBOTT-05P-056-0319737-00

PATIENT
  Age: 80 Year
  Sex: Female

DRUGS (2)
  1. DEPAKENE [Suspect]
     Indication: EPILEPSY
     Route: 048
     Dates: start: 19850101, end: 20050101
  2. DEPAKENE [Suspect]
     Dates: start: 20050101, end: 20051118

REACTIONS (5)
  - CEREBRAL DISORDER [None]
  - COGNITIVE DETERIORATION [None]
  - COGNITIVE DISORDER [None]
  - DEMENTIA [None]
  - INAPPROPRIATE AFFECT [None]
